FAERS Safety Report 23526410 (Version 1)
Quarter: 2024Q1

REPORT INFORMATION
  Report Type: Spontaneous
  Country: US (occurrence: None)
  Receive Date: 20240214
  Receipt Date: 20240214
  Transmission Date: 20240410
  Serious: Yes (Hospitalization)
  Sender: FDA-Public Use
  Company Number: None

PATIENT
  Sex: Male

DRUGS (1)
  1. ABIRATERONE ACETATE [Suspect]
     Active Substance: ABIRATERONE ACETATE
     Indication: Prostate cancer
     Dosage: FREQUENCY : DAILY;?
     Route: 048
     Dates: start: 202206

REACTIONS (10)
  - Cognitive disorder [None]
  - Balance disorder [None]
  - Dizziness [None]
  - Blood pressure increased [None]
  - Dyspnoea [None]
  - Thrombosis [None]
  - Heart rate increased [None]
  - Heart rate decreased [None]
  - Disease complication [None]
  - Hypercoagulation [None]
